FAERS Safety Report 19975226 (Version 3)
Quarter: 2021Q4

REPORT INFORMATION
  Report Type: Spontaneous
  Country: AT (occurrence: AT)
  Receive Date: 20211020
  Receipt Date: 20211112
  Transmission Date: 20220303
  Serious: Yes (Life-Threatening, Other)
  Sender: FDA-Public Use
  Company Number: AT-NOVPHSZ-PHHY2018AT049785

PATIENT
  Sex: Male

DRUGS (17)
  1. CYTARABINE [Suspect]
     Active Substance: CYTARABINE
     Indication: Acute lymphocytic leukaemia
     Dosage: UNK
     Route: 065
     Dates: start: 20170425, end: 20170516
  2. CYTARABINE [Suspect]
     Active Substance: CYTARABINE
     Dosage: UNK
     Route: 065
     Dates: start: 20170517, end: 20170618
  3. METHOTREXATE [Suspect]
     Active Substance: METHOTREXATE
     Indication: Acute lymphocytic leukaemia
     Dosage: UNK
     Route: 037
     Dates: start: 20170425, end: 20170516
  4. METHOTREXATE [Suspect]
     Active Substance: METHOTREXATE
     Dosage: UNK
     Route: 037
     Dates: start: 20170517, end: 20170618
  5. CYCLOPHOSPHAMIDE [Suspect]
     Active Substance: CYCLOPHOSPHAMIDE
     Indication: Acute lymphocytic leukaemia
     Dosage: UNK
     Route: 065
     Dates: start: 20170425, end: 20170516
  6. CYCLOPHOSPHAMIDE [Suspect]
     Active Substance: CYCLOPHOSPHAMIDE
     Dosage: UNK
     Route: 065
     Dates: start: 20170517, end: 20170618
  7. MERCAPTOPURINE [Suspect]
     Active Substance: MERCAPTOPURINE
     Indication: Acute lymphocytic leukaemia
     Dosage: UNK
     Route: 065
     Dates: start: 20170425, end: 20170516
  8. MERCAPTOPURINE [Suspect]
     Active Substance: MERCAPTOPURINE
     Dosage: UNK
     Route: 065
     Dates: start: 20170517, end: 20170619
  9. PREDNISOLONE [Suspect]
     Active Substance: PREDNISOLONE
     Indication: Acute lymphocytic leukaemia
     Dosage: UNK
     Route: 065
     Dates: start: 20170425, end: 20170516
  10. PEGASPARGASE [Suspect]
     Active Substance: PEGASPARGASE
     Indication: Acute lymphocytic leukaemia
     Dosage: UNK
     Route: 065
     Dates: start: 20170425, end: 20170516
  11. DEXAMETHASONE [Suspect]
     Active Substance: DEXAMETHASONE
     Indication: Acute lymphocytic leukaemia
     Dosage: UNK
     Route: 065
     Dates: start: 20170517, end: 20170618
  12. VINCRISTINE [Suspect]
     Active Substance: VINCRISTINE
     Indication: Acute lymphocytic leukaemia
     Dosage: UNK
     Route: 065
     Dates: start: 20170425, end: 20170516
  13. VINCRISTINE [Suspect]
     Active Substance: VINCRISTINE
     Dosage: UNK
     Dates: start: 20171002
  14. PONATINIB [Suspect]
     Active Substance: PONATINIB
     Indication: Acute lymphocytic leukaemia
     Dosage: 15 MILLIGRAM, QD (15 MG, QD)
     Route: 065
     Dates: start: 20161013, end: 20170622
  15. VORICONAZOLE [Suspect]
     Active Substance: VORICONAZOLE
     Indication: Product used for unknown indication
     Dosage: UNK
     Route: 065
  16. LISINOPRIL [Concomitant]
     Active Substance: LISINOPRIL
     Indication: Hypertension
     Dosage: 5 MILLIGRAM, QD (5 MG, QD)
     Route: 065
  17. CARVEDILOL [Concomitant]
     Active Substance: CARVEDILOL
     Indication: Cardiac disorder
     Dosage: 0.5 DOSAGE FORM, QD (0.5 DF, QD)
     Route: 065

REACTIONS (14)
  - Anaphylactic reaction [Unknown]
  - Gallbladder oedema [Recovered/Resolved]
  - Staphylococcal sepsis [Unknown]
  - Cytokine release syndrome [Unknown]
  - Ascites [Recovered/Resolved]
  - Hepatic steatosis [Recovered/Resolved]
  - Pericardial effusion [Unknown]
  - Gastrointestinal wall thickening [Recovered/Resolved]
  - Angioedema [Unknown]
  - Febrile neutropenia [Unknown]
  - Pancreatitis [Unknown]
  - Abdominal pain [Recovered/Resolved]
  - Respiratory distress [Unknown]
  - Bradycardia [Unknown]

NARRATIVE: CASE EVENT DATE: 20170606
